FAERS Safety Report 6547168-9 (Version None)
Quarter: 2009Q4

REPORT INFORMATION
  Report Type: 
  Country: None (occurrence: None)
  Receive Date: 20091215
  Receipt Date: 20081117
  Transmission Date: 20100525
  Serious: Yes (Other)
  Sender: FDA-Public Use
  Company Number: FEI2008-2047

PATIENT
  Age: 35 Year
  Sex: Female
  Weight: 40.8237 kg

DRUGS (2)
  1. PARAGARD T 380A [Suspect]
     Indication: CONTRACEPTION
     Dosage: INTRA-UTERINE
     Route: 015
     Dates: end: 20080922
  2. PRENATAL VITAMINS (ASCORBIC ACID, BIOTIN, TOCOPHEROL, NICOTINIC ACID, [Concomitant]

REACTIONS (3)
  - ABORTION SPONTANEOUS [None]
  - DEVICE EXPULSION [None]
  - UNINTENDED PREGNANCY [None]
